FAERS Safety Report 24205633 (Version 1)
Quarter: 2024Q3

REPORT INFORMATION
  Report Type: Spontaneous
  Country: CN (occurrence: CN)
  Receive Date: 20240813
  Receipt Date: 20240813
  Transmission Date: 20241017
  Serious: Yes (Hospitalization)
  Sender: NOVARTIS
  Company Number: CN-002147023-NVSC2024CN163876

PATIENT
  Age: 72 Year
  Sex: Female
  Weight: 56 kg

DRUGS (7)
  1. SACUBITRIL\VALSARTAN [Suspect]
     Active Substance: SACUBITRIL\VALSARTAN
     Indication: Hypertension
     Dosage: 100 MG, BID
     Route: 048
     Dates: start: 20240506, end: 20240723
  2. SACUBITRIL\VALSARTAN [Suspect]
     Active Substance: SACUBITRIL\VALSARTAN
     Indication: Cardiac disorder
  3. EZETIMIBE [Concomitant]
     Active Substance: EZETIMIBE
     Indication: Arteriosclerosis coronary artery
     Dosage: 10 MG, QD
     Route: 048
     Dates: start: 20240720, end: 20240730
  4. METOPROLOL SUCCINATE [Concomitant]
     Active Substance: METOPROLOL SUCCINATE
     Indication: Product used for unknown indication
     Dosage: 47.500 MG, QD
     Route: 048
     Dates: start: 20240725, end: 20240730
  5. ATORVASTATIN CALCIUM [Concomitant]
     Active Substance: ATORVASTATIN CALCIUM
     Indication: Arteriosclerosis coronary artery
     Dosage: 20 MG, QD
     Route: 048
     Dates: start: 20240720, end: 20240730
  6. FEBUXOSTAT [Concomitant]
     Active Substance: FEBUXOSTAT
     Indication: Blood uric acid
     Dosage: 40 MG, QD
     Route: 048
     Dates: start: 20240720, end: 20240723
  7. ASPIRIN [Concomitant]
     Active Substance: ASPIRIN
     Indication: Arteriosclerosis coronary artery
     Dosage: 0.10 G, QD
     Route: 048
     Dates: start: 20240720, end: 20240730

REACTIONS (1)
  - Cough [Recovering/Resolving]

NARRATIVE: CASE EVENT DATE: 20240506
